FAERS Safety Report 5809177-4 (Version None)
Quarter: 2008Q3

REPORT INFORMATION
  Report Type: 
  Country: None (occurrence: None)
  Receive Date: 20080714
  Receipt Date: 20080702
  Transmission Date: 20090109
  Serious: Yes (Other)
  Sender: FDA-Public Use
  Company Number: DE-PFIZER INC-2008053373

PATIENT
  Sex: Male
  Weight: 73 kg

DRUGS (3)
  1. VIAGRA [Suspect]
     Dosage: DAILY DOSE:50MG
     Route: 048
  2. BETA BLOCKING AGENTS [Concomitant]
  3. CALCIUM CHANNEL BLOCKERS [Concomitant]

REACTIONS (3)
  - CONJUNCTIVAL HAEMORRHAGE [None]
  - FLUSHING [None]
  - NASAL CONGESTION [None]
